FAERS Safety Report 6065618-1 (Version None)
Quarter: 2009Q1

REPORT INFORMATION
  Report Type: 
  Country: None (occurrence: None)
  Receive Date: 20090204
  Receipt Date: 20090127
  Transmission Date: 20090719
  Serious: Yes (Hospitalization, Other)
  Sender: FDA-Public Use
  Company Number: PHHO2007MX11621

PATIENT
  Sex: Female

DRUGS (3)
  1. DIOVAN HCT [Suspect]
     Indication: HYPERTENSION
     Dosage: 80/12.5MG DAILY
     Route: 048
     Dates: start: 20070401
  2. CAPTOPRIL [Concomitant]
     Indication: HYPERTENSION
  3. INSULIN [Concomitant]
     Indication: DIABETES MELLITUS
     Dosage: UNK

REACTIONS (4)
  - DIALYSIS [None]
  - DRUG INEFFECTIVE [None]
  - HYPERTENSION [None]
  - RENAL DISORDER [None]
